FAERS Safety Report 4610308-2 (Version None)
Quarter: 2005Q1

REPORT INFORMATION
  Report Type: 
  Country: None (occurrence: None)
  Receive Date: 20050314
  Receipt Date: 20050314
  Transmission Date: 20050727
  Serious: No
  Sender: FDA-Public Use
  Company Number: 05-0030-RF

PATIENT
  Age: 44 Year
  Sex: Female

DRUGS (4)
  1. ROBINUL [Suspect]
     Indication: HYPERHIDROSIS
     Dosage: 4-6 MG, AS NEEDED, ORAL
     Route: 048
     Dates: start: 20040301, end: 20050301
  2. PAXIL [Concomitant]
  3. XALATAN [Concomitant]
  4. MULTI-VITAMINS [Concomitant]

REACTIONS (2)
  - CONSTIPATION [None]
  - OPEN ANGLE GLAUCOMA [None]
